FAERS Safety Report 8900534 (Version 3)
Quarter: 2013Q1

REPORT INFORMATION
  Report Type: Report from Study
  Country: JP (occurrence: JP)
  Receive Date: 20121109
  Receipt Date: 20130313
  Transmission Date: 20140127
  Serious: Yes (Life-Threatening)
  Sender: FDA-Public Use
  Company Number: JP-AMGEN-JPNCT2012071559

PATIENT
  Age: 61 Year
  Sex: Male
  Weight: 81 kg

DRUGS (6)
  1. ROMIPLOSTIM - KHK [Suspect]
     Indication: IDIOPATHIC THROMBOCYTOPENIC PURPURA
     Dosage: 1 MUG/KG, UNK
     Route: 058
     Dates: start: 20120411, end: 20120425
  2. DECADRON [Suspect]
     Indication: IDIOPATHIC THROMBOCYTOPENIC PURPURA
     Dosage: 1 MG, UNK
     Route: 048
     Dates: start: 20060301
  3. DECADRON [Suspect]
     Dosage: 2 MG, UNK
     Dates: start: 20120425
  4. DIOVAN [Concomitant]
     Indication: HYPERTENSION
     Dosage: UNK
     Route: 048
  5. FOSAMAC [Concomitant]
     Indication: OSTEOPOROSIS
     Dosage: 5 MG, UNK
     Route: 048
  6. GASTER D [Concomitant]
     Indication: GASTRITIS
     Dosage: UNK
     Route: 048

REACTIONS (2)
  - Liver disorder [Unknown]
  - White blood cell count increased [Unknown]
